FAERS Safety Report 12512843 (Version 1)
Quarter: 2016Q2

REPORT INFORMATION
  Report Type: Spontaneous
  Country: US (occurrence: None)
  Receive Date: 20160629
  Receipt Date: 20160629
  Transmission Date: 20160815
  Serious: Yes (Disabling)
  Sender: FDA-Public Use
  Company Number: None

PATIENT
  Age: 76 Year
  Sex: Female
  Weight: 90.27 kg

DRUGS (7)
  1. LEVOFLOXACIN 500MG TABLETS WALGREENS [Suspect]
     Active Substance: LEVOFLOXACIN
     Indication: HEADACHE
     Dosage: 1 PILL DAILY BY MOUTH
     Route: 048
     Dates: start: 20150717, end: 20150721
  2. SPIRONOLACTONE. [Concomitant]
     Active Substance: SPIRONOLACTONE
  3. VITAMIN D3 [Concomitant]
     Active Substance: CHOLECALCIFEROL
  4. BIOTIN [Concomitant]
     Active Substance: BIOTIN
  5. CALL-MEG CITRATE COMPLEX [Concomitant]
  6. ASPIRIN. [Concomitant]
     Active Substance: ASPIRIN
  7. LEVOFLOXACIN 500MG TABLETS WALGREENS [Suspect]
     Active Substance: LEVOFLOXACIN
     Indication: HYPOACUSIS
     Dosage: 1 PILL DAILY BY MOUTH
     Route: 048
     Dates: start: 20150717, end: 20150721

REACTIONS (13)
  - Pain [None]
  - Abdominal distension [None]
  - Hypoaesthesia [None]
  - Arthralgia [None]
  - Balance disorder [None]
  - Pain in extremity [None]
  - Dizziness [None]
  - Insomnia [None]
  - Discomfort [None]
  - Nausea [None]
  - Vision blurred [None]
  - Constipation [None]
  - Fatigue [None]

NARRATIVE: CASE EVENT DATE: 20150717
